FAERS Safety Report 5486283-8 (Version None)
Quarter: 2007Q3

REPORT INFORMATION
  Report Type: 
  Country: None (occurrence: None)
  Receive Date: 20070917
  Receipt Date: 20070606
  Transmission Date: 20080115
  Serious: Yes (Other)
  Sender: FDA-Public Use
  Company Number: S07-USA-02473-01

PATIENT
  Age: 53 Year
  Sex: Female

DRUGS (2)
  1. CELEXA [Suspect]
     Indication: DEPRESSION
     Dates: start: 20070201, end: 20070401
  2. EFFEXOR [Concomitant]

REACTIONS (7)
  - AGITATION [None]
  - CRYING [None]
  - FIBROMYALGIA [None]
  - INSOMNIA [None]
  - IRRITABILITY [None]
  - MOOD SWINGS [None]
  - SUICIDAL IDEATION [None]
